FAERS Safety Report 5368501-X (Version None)
Quarter: 2007Q2

REPORT INFORMATION
  Report Type: 
  Country: None (occurrence: None)
  Receive Date: 20070625
  Receipt Date: 20070622
  Transmission Date: 20071010
  Serious: Yes (Disabling)
  Sender: FDA-Public Use
  Company Number: FR-BAYER-200610035BFR

PATIENT
  Age: 35 Year
  Sex: Female

DRUGS (1)
  1. CIFLOX [Suspect]
     Indication: URINARY TRACT INFECTION
     Dosage: TOTAL DAILY DOSE: 1000 MG
     Route: 048
     Dates: start: 20041227, end: 20041231

REACTIONS (5)
  - CUBITAL TUNNEL SYNDROME [None]
  - HYPERPATHIA [None]
  - HYPOAESTHESIA [None]
  - MONONEURITIS [None]
  - NEUROPATHY PERIPHERAL [None]
